FAERS Safety Report 9067375 (Version 1)
Quarter: 2013Q1

REPORT INFORMATION
  Report Type: Report from Study
  Country: US (occurrence: US)
  Receive Date: 20130128
  Receipt Date: 20130128
  Transmission Date: 20140127
  Serious: Yes (Hospitalization)
  Sender: FDA-Public Use
  Company Number: US-ABBOTT-11P-163-0870537-00

PATIENT
  Age: 68 None
  Sex: Male
  Weight: 92.62 kg

DRUGS (2)
  1. HUMIRA 40 MG/0.8 ML PEN [Suspect]
     Indication: CROHN^S DISEASE
     Dates: start: 2008
  2. PENTASA [Concomitant]
     Indication: CROHN^S DISEASE

REACTIONS (2)
  - Sigmoidectomy [Recovering/Resolving]
  - Hypertension [Not Recovered/Not Resolved]
